FAERS Safety Report 26044529 (Version 1)
Quarter: 2025Q4

REPORT INFORMATION
  Report Type: Spontaneous
  Country: CN (occurrence: CN)
  Receive Date: 20251114
  Receipt Date: 20251114
  Transmission Date: 20260117
  Serious: Yes (Life-Threatening, Hospitalization, Other)
  Sender: SANOFI AVENTIS
  Company Number: CN-SA-2025SA334213

PATIENT
  Age: 57 Year
  Sex: Male

DRUGS (1)
  1. DUPILUMAB [Suspect]
     Active Substance: DUPILUMAB
     Indication: Dermatitis atopic
     Dosage: 300 MG, QD
     Route: 058
     Dates: start: 20251026, end: 20251026

REACTIONS (12)
  - Diabetic ketoacidosis [Recovering/Resolving]
  - Ketonuria [Recovering/Resolving]
  - Blood glucose increased [Recovering/Resolving]
  - Blood pH decreased [Recovering/Resolving]
  - Blood bicarbonate decreased [Recovering/Resolving]
  - Pyrexia [Recovering/Resolving]
  - Dry mouth [Recovering/Resolving]
  - Asthenia [Recovering/Resolving]
  - Rhinorrhoea [Recovering/Resolving]
  - Nausea [Recovering/Resolving]
  - Back pain [Recovering/Resolving]
  - Dizziness [Recovering/Resolving]

NARRATIVE: CASE EVENT DATE: 20251027
